FAERS Safety Report 6206624-3 (Version None)
Quarter: 2009Q2

REPORT INFORMATION
  Report Type: 
  Country: None (occurrence: None)
  Receive Date: 20090527
  Receipt Date: 20090527
  Transmission Date: 20091009
  Serious: Yes (Other)
  Sender: FDA-Public Use
  Company Number: None

PATIENT
  Age: 58 Year
  Sex: Male
  Weight: 100.6985 kg

DRUGS (2)
  1. PRILOSEC [Suspect]
     Indication: HIATUS HERNIA
     Dosage: 1 PILL A DAY 14 DAYS BUCCAL
     Route: 002
     Dates: start: 20090401, end: 20090414
  2. NEXIUM [Suspect]
     Indication: HIATUS HERNIA
     Dosage: 1 PILL A DAY 20 DAYS BUCCAL
     Route: 002
     Dates: start: 20090501, end: 20090525

REACTIONS (1)
  - CHEST PAIN [None]
